FAERS Safety Report 9674867 (Version 12)
Quarter: 2016Q4

REPORT INFORMATION
  Report Type: Report from Study
  Country: BR (occurrence: BR)
  Receive Date: 20131107
  Receipt Date: 20161019
  Transmission Date: 20170207
  Serious: Yes (Other)
  Sender: FDA-Public Use
  Company Number: PHHY2013BR126468

PATIENT
  Sex: Female
  Weight: 60 kg

DRUGS (14)
  1. DIOVAN [Suspect]
     Active Substance: VALSARTAN
     Dosage: 0.5 DF (320 MG), BID (APPROXIMATELY ONE YEAR AGO TO 3 MONTHS AGO)
     Route: 048
  2. DIOVAN [Suspect]
     Active Substance: VALSARTAN
     Dosage: 1 DF, (320 MG), QD (1 WHOLE TABLET IN THE MORNING)28 TABLETS
     Route: 048
  3. DIOVAN [Suspect]
     Active Substance: VALSARTAN
     Indication: HYPERTENSION
     Dosage: 0.5 DF (320 MG), BID (IN THE MORNING AND IN THE NIGHT)
     Route: 048
     Dates: start: 20050407
  4. INDAPAMIDE. [Concomitant]
     Active Substance: INDAPAMIDE
     Dosage: 1.5 MG, QD (FROM 3 MONTHS AGO)
     Route: 048
  5. NATRILIX [Concomitant]
     Active Substance: INDAPAMIDE
     Indication: PRODUCT USED FOR UNKNOWN INDICATION
     Route: 065
  6. DIOVAN [Suspect]
     Active Substance: VALSARTAN
     Dosage: 1 DF (320 MG), QD IN THE MORNING (FROM 3 MONTHS AGO)
     Route: 048
  7. MIFLASONA [Suspect]
     Active Substance: BECLOMETHASONE DIPROPIONATE
     Indication: SINUSITIS
     Dosage: 400 UG, UNK (60 CAPSULES) (MORE THAN 8 MONTHS AGO)
     Route: 065
  8. INDAPAMIDE. [Concomitant]
     Active Substance: INDAPAMIDE
     Indication: HYPERTENSION
     Dosage: 1.5 MG, QHS
     Route: 065
  9. FORASEQ [Suspect]
     Active Substance: BUDESONIDE\FORMOTEROL FUMARATE
     Indication: ASTHMA
     Dosage: 1 DF (BUDESONIDE 400 UG, FORMOTEROL FUMARATE 12 UG),(60+60 CAPSULES) Q12H
     Route: 055
  10. ATENSINA [Suspect]
     Active Substance: CLONIDINE
     Indication: HYPERTENSION
     Dosage: 0.100 ML/30 TABLETS (AS REPORTED), UNK
     Route: 065
  11. MIFLASONA [Suspect]
     Active Substance: BECLOMETHASONE DIPROPIONATE
     Indication: FATIGUE
  12. AMLODIPINE [Suspect]
     Active Substance: AMLODIPINE BESYLATE
     Indication: PRODUCT USED FOR UNKNOWN INDICATION
     Dosage: 10 MG, UNK
     Route: 065
  13. FORASEQ [Suspect]
     Active Substance: BUDESONIDE\FORMOTEROL FUMARATE
     Dosage: ONCE A DAY THE WHITE CAPSULE AND USES THE 2 CAPSULES ONLY WHEN IS IN CRISIS (12 MCG/400 MCG)
     Route: 055
  14. CAPOTEN [Suspect]
     Active Substance: CAPTOPRIL
     Indication: PRODUCT USED FOR UNKNOWN INDICATION
     Route: 065

REACTIONS (16)
  - Asthma [Recovering/Resolving]
  - Blood pressure increased [Recovered/Resolved]
  - Nasopharyngitis [Unknown]
  - Gastrointestinal tract adenoma [Recovering/Resolving]
  - Dysphonia [Unknown]
  - Fear [Unknown]
  - Reflux gastritis [Unknown]
  - Drug prescribing error [Unknown]
  - Rhinitis [Unknown]
  - Arthropathy [Unknown]
  - Sinusitis [Unknown]
  - Chronic sinusitis [Unknown]
  - Somnolence [Unknown]
  - Peripheral swelling [Recovering/Resolving]
  - Drug ineffective [Unknown]
  - Wrong technique in product usage process [Unknown]

NARRATIVE: CASE EVENT DATE: 2016
